FAERS Safety Report 17888245 (Version 2)
Quarter: 2022Q1

REPORT INFORMATION
  Report Type: Spontaneous
  Country: US (occurrence: US)
  Receive Date: 20200612
  Receipt Date: 20220307
  Transmission Date: 20220423
  Serious: Yes (Death, Other)
  Sender: FDA-Public Use
  Company Number: US-SAARTEMIS-SAC202006100195

PATIENT
  Age: 69 Year

DRUGS (1)
  1. ZANTAC [Suspect]
     Active Substance: RANITIDINE HYDROCHLORIDE
     Indication: Dyspepsia
     Dosage: UNK UNK,UNK
     Route: 065
     Dates: start: 201301, end: 201807

REACTIONS (2)
  - Pancreatic carcinoma stage IV [Fatal]
  - Disease progression [Fatal]

NARRATIVE: CASE EVENT DATE: 20180701
